FAERS Safety Report 25683085 (Version 1)
Quarter: 2025Q3

REPORT INFORMATION
  Report Type: Spontaneous
  Country: EU (occurrence: EU)
  Receive Date: 20250814
  Receipt Date: 20250814
  Transmission Date: 20251021
  Serious: Yes (Other)
  Sender: AUROBINDO
  Company Number: EU-POLFAT-2021000147

PATIENT
  Age: 60 Year
  Sex: Male

DRUGS (26)
  1. AZITHROMYCIN [Interacting]
     Active Substance: AZITHROMYCIN
     Indication: Respiratory tract infection
     Route: 065
  2. CYCLOSPORINE [Interacting]
     Active Substance: CYCLOSPORINE
     Indication: Product used for unknown indication
     Dosage: 50 MILLIGRAM, TWO TIMES A DAY
     Route: 048
  3. CYCLOSPORINE [Interacting]
     Active Substance: CYCLOSPORINE
     Dosage: 75 MILLIGRAM, TWO TIMES A DAY
     Route: 048
  4. CYCLOSPORINE [Interacting]
     Active Substance: CYCLOSPORINE
     Dosage: 175 MILLIGRAM, ONCE A DAY
     Route: 048
  5. ALFACALCIDOL [Concomitant]
     Active Substance: ALFACALCIDOL
     Indication: Product used for unknown indication
     Route: 065
  6. ATORVASTATIN [Concomitant]
     Active Substance: ATORVASTATIN
     Indication: Product used for unknown indication
     Route: 065
  7. METHYLPREDNISOLONE [Concomitant]
     Active Substance: METHYLPREDNISOLONE
     Indication: Immunosuppressant drug therapy
     Route: 042
  8. LOSARTAN [Concomitant]
     Active Substance: LOSARTAN
     Indication: Hypertension
     Route: 065
  9. ALLOPURINOL [Concomitant]
     Active Substance: ALLOPURINOL
     Indication: Product used for unknown indication
     Route: 065
  10. PREDNISONE [Concomitant]
     Active Substance: PREDNISONE
     Indication: Immunosuppressant drug therapy
     Dosage: 40 MILLIGRAM, EVERY OTHER DAY
     Route: 065
  11. PREDNISONE [Concomitant]
     Active Substance: PREDNISONE
     Dosage: 30 MILLIGRAM, EVERY OTHER DAY
     Route: 065
  12. PREDNISONE [Concomitant]
     Active Substance: PREDNISONE
     Dosage: 10 MILLIGRAM, EVERY OTHER DAY
     Route: 065
  13. RAMIPRIL [Concomitant]
     Active Substance: RAMIPRIL
     Indication: Hypertension
     Route: 065
  14. PANTOPRAZOLE [Concomitant]
     Active Substance: PANTOPRAZOLE
     Indication: Product used for unknown indication
     Route: 065
  15. NITRENDIPINE [Concomitant]
     Active Substance: NITRENDIPINE
     Indication: Hypertension
     Route: 065
  16. AMOXICILLIN\CLAVULANIC ACID [Concomitant]
     Active Substance: AMOXICILLIN\CLAVULANIC ACID
     Indication: Product used for unknown indication
     Route: 065
  17. BCG VACCINE [Concomitant]
     Active Substance: BCG VACCINE
     Indication: Product used for unknown indication
     Route: 043
  18. LISINOPRIL [Concomitant]
     Active Substance: LISINOPRIL
     Indication: Product used for unknown indication
     Route: 065
  19. LERCANIDIPINE [Concomitant]
     Active Substance: LERCANIDIPINE
     Indication: Hypertension
     Route: 065
  20. EPLERENONE [Concomitant]
     Active Substance: EPLERENONE
     Indication: Product used for unknown indication
     Route: 065
  21. DOXAZOSIN [Concomitant]
     Active Substance: DOXAZOSIN MESYLATE
     Indication: Product used for unknown indication
     Route: 065
  22. INDAPAMIDE [Concomitant]
     Active Substance: INDAPAMIDE
     Indication: Product used for unknown indication
     Route: 065
  23. FUROSEMIDE [Concomitant]
     Active Substance: FUROSEMIDE
     Indication: Product used for unknown indication
     Route: 065
  24. CIPROFLOXACIN [Concomitant]
     Active Substance: CIPROFLOXACIN
     Indication: Product used for unknown indication
     Route: 065
  25. CEFTRIAXONE [Concomitant]
     Active Substance: CEFTRIAXONE
     Indication: Product used for unknown indication
     Route: 065
  26. IRON [Concomitant]
     Active Substance: IRON
     Indication: Anaemia
     Route: 042

REACTIONS (2)
  - Drug interaction [Recovered/Resolved]
  - Immunosuppressant drug level increased [Recovered/Resolved]
